FAERS Safety Report 5223474-5 (Version None)
Quarter: 2007Q1

REPORT INFORMATION
  Report Type: 
  Country: None (occurrence: None)
  Receive Date: 20070125
  Receipt Date: 20070115
  Transmission Date: 20070707
  Serious: Yes (Hospitalization)
  Sender: FDA-Public Use
  Company Number: 2007-00158

PATIENT
  Age: 1 Day
  Sex: Male

DRUGS (3)
  1. ACETAMINOPHEN AND HYDROCODONE BITARTRATE [Suspect]
     Indication: DRUG USE FOR UNKNOWN INDICATION
     Dosage: UNKNOWN DOSE UP TO 8 TIMES DAILY, TRANSPLACENTAL
     Route: 064
     Dates: start: 20020101
  2. ACTIQ [Suspect]
     Indication: MIGRAINE
     Dosage: 1200 UG, UP TO 8 TIMES DAILY, TRANSPLACENTAL
     Route: 064
     Dates: start: 20020701
  3. HEROIN (DIAMORPHINE) [Suspect]
     Dosage: TRANSPLACENTAL
     Route: 064
     Dates: end: 20021011

REACTIONS (4)
  - DRUG EXPOSURE DURING PREGNANCY [None]
  - DRUG WITHDRAWAL SYNDROME [None]
  - PULMONARY MALFORMATION [None]
  - UNDERWEIGHT [None]
